FAERS Safety Report 8911839 (Version 1)
Quarter: 2012Q4

REPORT INFORMATION
  Report Type: 
  Country: SI (occurrence: SI)
  Receive Date: 20121115
  Receipt Date: 20121115
  Transmission Date: 20130627
  Serious: Yes (Hospitalization)
  Sender: FDA-Public Use
  Company Number: SI-ROCHE-1154537

PATIENT
  Age: 69 Year
  Sex: Male

DRUGS (7)
  1. MABTHERA [Suspect]
     Indication: CHRONIC LYMPHOCYTIC LEUKAEMIA
     Dosage: UNK
     Route: 042
     Dates: start: 20120926, end: 20121017
  2. MEDROL [Concomitant]
     Route: 065
  3. NEXIUM [Concomitant]
     Route: 065
  4. ALDACTONE [Concomitant]
     Route: 065
  5. EDEMID [Concomitant]
     Route: 065
  6. INSULIN [Concomitant]
     Route: 065
  7. ALLOPURINOL [Concomitant]

REACTIONS (5)
  - Pyrexia [Unknown]
  - Cardiac failure [Unknown]
  - Hypoalbuminaemia [Unknown]
  - Penile oedema [Recovered/Resolved]
  - Oedema peripheral [Unknown]
